FAERS Safety Report 18941107 (Version 1)
Quarter: 2021Q1

REPORT INFORMATION
  Report Type: Report from Study
  Country: US (occurrence: US)
  Receive Date: 20210225
  Receipt Date: 20210225
  Transmission Date: 20210420
  Serious: Yes (Other)
  Sender: FDA-Public Use
  Company Number: NVSC2021US033390

PATIENT
  Sex: Male

DRUGS (2)
  1. ENTRESTO [Suspect]
     Active Substance: SACUBITRIL\VALSARTAN
     Indication: PRODUCT USED FOR UNKNOWN INDICATION
     Route: 065
  2. LASIX [Suspect]
     Active Substance: FUROSEMIDE
     Indication: PRODUCT USED FOR UNKNOWN INDICATION
     Route: 065

REACTIONS (15)
  - Drug hypersensitivity [Unknown]
  - Mass [Unknown]
  - Joint swelling [Unknown]
  - Off label use [Unknown]
  - Heart rate increased [Unknown]
  - Pain [Unknown]
  - Left ventricular end-diastolic pressure increased [Unknown]
  - Renal failure [Unknown]
  - Hypotension [Unknown]
  - Weight decreased [Unknown]
  - Obstructive airways disorder [Unknown]
  - Dyspnoea [Unknown]
  - Pericardial effusion [Unknown]
  - Peripheral swelling [Unknown]
  - Cardiomegaly [Unknown]
